FAERS Safety Report 9630918 (Version 2)
Quarter: 2013Q4

REPORT INFORMATION
  Report Type: Spontaneous
  Country: JP (occurrence: JP)
  Receive Date: 20131018
  Receipt Date: 20131028
  Transmission Date: 20140711
  Serious: Yes (Hospitalization)
  Sender: FDA-Public Use
  Company Number: JP-PFIZER INC-2013296390

PATIENT
  Age: 8 Decade
  Sex: Male

DRUGS (2)
  1. LYRICA [Suspect]
     Dosage: 75 MG, 2X/DAY
     Route: 048
  2. LYRICA [Suspect]
     Dosage: UNK, AS NEEDED
     Route: 048

REACTIONS (3)
  - Inappropriate schedule of drug administration [Unknown]
  - Hepatic cancer [Unknown]
  - Hypoaesthesia [Unknown]
